FAERS Safety Report 9237947 (Version 1)
Quarter: 2013Q1

REPORT INFORMATION
  Report Type: Spontaneous
  Country: US (occurrence: None)
  Receive Date: 20121106
  Receipt Date: 20121106
  Transmission Date: 20140127
  Serious: No
  Sender: FDA-Public Use
  Company Number: 1000039100

PATIENT
  Age: 58 Year
  Sex: Male
  Weight: 72 kg

DRUGS (4)
  1. DALIRESP [Suspect]
     Indication: CHRONIC OBSTRUCTIVE PULMONARY DISEASE
     Route: 048
     Dates: start: 201209, end: 201209
  2. OMEPRAZOLE(OMEPRAZOLE) (OMEPRAZOLE) [Concomitant]
  3. AMLODIPINE(AMLODIPINE) (AMLODIPINE) [Concomitant]
  4. ENALAPRIL(ENALAPRIL) (ENALAPRIL) [Concomitant]

REACTIONS (8)
  - Somnolence [None]
  - Dizziness [None]
  - Back pain [None]
  - Nausea [None]
  - Insomnia [None]
  - Weight decreased [None]
  - Headache [None]
  - Diarrhoea [None]
